FAERS Safety Report 6532565-8 (Version None)
Quarter: 2009Q4

REPORT INFORMATION
  Report Type: 
  Country: None (occurrence: None)
  Receive Date: 20091223
  Receipt Date: 20091211
  Transmission Date: 20100525
  Serious: Yes (Other)
  Sender: FDA-Public Use
  Company Number: 2009021082

PATIENT
  Sex: Female
  Weight: 56.6996 kg

DRUGS (1)
  1. VIVAGLOBIN [Suspect]
     Indication: HYPOGAMMAGLOBULINAEMIA
     Dosage: (50 ML, 50 ML WEEKLY SUBCUTANEOUS)
     Route: 058
     Dates: start: 20090929, end: 20090929

REACTIONS (6)
  - INFUSION SITE MASS [None]
  - INFUSION SITE PAIN [None]
  - INFUSION SITE SWELLING [None]
  - INFUSION SITE URTICARIA [None]
  - KIDNEY INFECTION [None]
  - MICTURITION URGENCY [None]
